FAERS Safety Report 4679219-0 (Version None)
Quarter: 2005Q2

REPORT INFORMATION
  Report Type: 
  Country: None (occurrence: None)
  Receive Date: 20050311
  Receipt Date: 20050311
  Transmission Date: 20051028
  Serious: Yes (Other)
  Sender: FDA-Public Use
  Company Number: None

PATIENT
  Age: 61 Year
  Sex: Female
  Weight: 107.5025 kg

DRUGS (1)
  1. AMMONIUM LACTATE [Suspect]
     Indication: ECZEMA
     Dosage: APPLY TWICE DAILY TO SKIN
     Dates: start: 20041025, end: 20041102

REACTIONS (2)
  - PRURITUS GENERALISED [None]
  - THERAPEUTIC RESPONSE UNEXPECTED WITH DRUG SUBSTITUTION [None]
